FAERS Safety Report 7877726-0 (Version None)
Quarter: 2011Q4

REPORT INFORMATION
  Report Type: 
  Country: None (occurrence: None)
  Receive Date: 20111031
  Receipt Date: 20111031
  Transmission Date: 20120403
  Serious: Yes (Hospitalization)
  Sender: FDA-Public Use
  Company Number: None

PATIENT
  Age: 48 Year
  Sex: Female
  Weight: 97.522 kg

DRUGS (1)
  1. CYMBALTA [Suspect]
     Indication: BACK PAIN
     Dosage: 30 MG
     Route: 048
     Dates: start: 20110830, end: 20110830

REACTIONS (11)
  - EYE DISORDER [None]
  - NERVOUSNESS [None]
  - IMPAIRED DRIVING ABILITY [None]
  - MEMORY IMPAIRMENT [None]
  - LOSS OF CONSCIOUSNESS [None]
  - DYSPHEMIA [None]
  - SPEECH DISORDER [None]
  - TREMOR [None]
  - DYSCALCULIA [None]
  - CLAUSTROPHOBIA [None]
  - ANXIETY [None]
